FAERS Safety Report 7911751-6 (Version None)
Quarter: 2011Q4

REPORT INFORMATION
  Report Type: 
  Country: None (occurrence: None)
  Receive Date: 20111114
  Receipt Date: 20111114
  Transmission Date: 20120403
  Serious: Yes (Other)
  Sender: FDA-Public Use
  Company Number: None

PATIENT
  Age: 44 Year
  Sex: Female
  Weight: 114.3 kg

DRUGS (2)
  1. TOPIRAMATE [Suspect]
     Indication: EPILEPSY
     Dosage: 25MG
     Route: 048
     Dates: start: 20111101, end: 20111108
  2. TOPIRAMATE [Concomitant]
     Indication: MIGRAINE
     Dosage: 50MG
     Route: 048
     Dates: start: 20111109, end: 20111110

REACTIONS (2)
  - NAUSEA [None]
  - DIARRHOEA [None]
